FAERS Safety Report 23062129 (Version 1)
Quarter: 2023Q4

REPORT INFORMATION
  Report Type: Spontaneous
  Country: CO (occurrence: CO)
  Receive Date: 20231013
  Receipt Date: 20231013
  Transmission Date: 20240110
  Serious: Yes (Hospitalization, Other)
  Sender: FDA-Public Use
  Company Number: CO-SA-SAC20231011001180

PATIENT
  Age: 59 Year
  Sex: Male

DRUGS (1)
  1. PRALUENT [Suspect]
     Active Substance: ALIROCUMAB
     Indication: Hypercholesterolaemia
     Dosage: 150 MG, QOW
     Route: 058
     Dates: start: 202303

REACTIONS (5)
  - Cardiac pacemaker insertion [Unknown]
  - Swelling face [Unknown]
  - Abdominal distension [Unknown]
  - Peripheral swelling [Unknown]
  - Urine output decreased [Unknown]

NARRATIVE: CASE EVENT DATE: 20230930
